FAERS Safety Report 14670159 (Version 3)
Quarter: 2018Q2

REPORT INFORMATION
  Report Type: Spontaneous
  Country: JP (occurrence: JP)
  Receive Date: 20180322
  Receipt Date: 20180518
  Transmission Date: 20180711
  Serious: Yes (Other)
  Sender: FDA-Public Use
  Company Number: JP-INCYTE CORPORATION-2018IN002335

PATIENT

DRUGS (1)
  1. JAKAVI [Suspect]
     Active Substance: RUXOLITINIB
     Indication: MYELOFIBROSIS
     Dosage: 15 MG, (IN TWO DIVIDED DOSES)
     Route: 048
     Dates: start: 201801

REACTIONS (2)
  - Platelet count decreased [Unknown]
  - Skin cancer [Unknown]
